FAERS Safety Report 9965678 (Version 1)
Quarter: 2014Q1

REPORT INFORMATION
  Report Type: Report from Study
  Country: US (occurrence: US)
  Receive Date: 20140305
  Receipt Date: 20140305
  Transmission Date: 20141002
  Serious: No
  Sender: FDA-Public Use
  Company Number: US-ABBVIE-13P-163-1125707-00

PATIENT
  Age: 50 Year
  Sex: Female

DRUGS (23)
  1. HUMIRA [Suspect]
     Indication: RHEUMATOID ARTHRITIS
     Dates: start: 20130711
  2. FOSAMAX [Concomitant]
     Indication: OSTEOPOROSIS
  3. DULERA [Concomitant]
     Indication: ASTHMA
     Dosage: 200/5MCG 2 PUFFS DAILY AND TWICE DAILY AS REQUIRED
  4. POTASSIUM [Concomitant]
     Indication: BLOOD POTASSIUM DECREASED
     Dosage: IN THE MORNING AND AT NIGHT
  5. ZYRTEC [Concomitant]
     Indication: HYPERSENSITIVITY
  6. ZYRTEC [Concomitant]
     Indication: ASTHMA
  7. LOSARTAN POTASSIUM [Concomitant]
     Indication: HYPERTENSION
  8. FOLIC ACID [Concomitant]
     Indication: PRODUCT USED FOR UNKNOWN INDICATION
  9. METHOTREXATE [Concomitant]
     Indication: RHEUMATOID ARTHRITIS
     Route: 058
  10. SINGULAIR [Concomitant]
     Indication: HYPERSENSITIVITY
  11. SINGULAIR [Concomitant]
     Indication: ASTHMA
  12. METOLAZONE [Concomitant]
     Indication: SWELLING
  13. METOLAZONE [Concomitant]
     Indication: ABDOMINAL DISTENSION
  14. FUROSEMIDE [Concomitant]
     Indication: SWELLING
     Dosage: 20 MG 1 TO 2 TABLETS DAILY
  15. FUROSEMIDE [Concomitant]
     Indication: ABDOMINAL DISTENSION
  16. ALBUTEROL [Concomitant]
     Indication: ASTHMA
  17. MULTIVITAMIN [Concomitant]
     Indication: PRODUCT USED FOR UNKNOWN INDICATION
  18. CALCIUM [Concomitant]
     Indication: PRODUCT USED FOR UNKNOWN INDICATION
  19. VITAMIN D [Concomitant]
     Indication: PRODUCT USED FOR UNKNOWN INDICATION
  20. PREDNISONE [Concomitant]
     Indication: PRODUCT USED FOR UNKNOWN INDICATION
     Dosage: TAPER EVERY OTHER MONTH
  21. PREDNISONE [Concomitant]
     Dosage: 2ND WEEK:  5 MG IN AM AND 2.5 MG IN PM
  22. PREDNISONE [Concomitant]
     Dosage: 3RD WEEK: 5 MG EACH MORNING
  23. PREDNISONE [Concomitant]
     Dosage: 4TH WK:2.5MG IN AM FOR A WEEK-THEN STOP AND RESTART

REACTIONS (7)
  - Pleurisy [Recovering/Resolving]
  - Muscle twitching [Recovering/Resolving]
  - Muscle spasms [Recovering/Resolving]
  - Chest discomfort [Unknown]
  - Dyspnoea [Unknown]
  - Local swelling [Unknown]
  - Pain in extremity [Unknown]
